FAERS Safety Report 15994692 (Version 8)
Quarter: 2021Q2

REPORT INFORMATION
  Report Type: Report from Study
  Country: CA (occurrence: CA)
  Receive Date: 20190222
  Receipt Date: 20210518
  Transmission Date: 20210716
  Serious: Yes (Other)
  Sender: FDA-Public Use
  Company Number: PHHY2017CA027401

PATIENT
  Age: 55 Year
  Sex: Male

DRUGS (5)
  1. SANDOSTATIN LAR DEPOT [Suspect]
     Active Substance: OCTREOTIDE ACETATE
     Indication: PANCREATIC NEUROENDOCRINE TUMOUR
     Dosage: 30 MG, Q4W (EVERY 4 WEEKS)
     Route: 030
     Dates: start: 20150807, end: 20170317
  2. SANDOSTATIN LAR DEPOT [Suspect]
     Active Substance: OCTREOTIDE ACETATE
     Dosage: 60 MG, QMO
     Route: 030
     Dates: start: 20170413
  3. SANDOSTATIN LAR DEPOT [Suspect]
     Active Substance: OCTREOTIDE ACETATE
     Dosage: 60 MG, Q4W (EVERY 4 WEEKS)
     Route: 030
     Dates: start: 20181123
  4. SANDOSTATIN LAR DEPOT [Suspect]
     Active Substance: OCTREOTIDE ACETATE
     Dosage: 90 MG, Q4W
     Route: 030
  5. SANDOSTATIN LAR DEPOT [Suspect]
     Active Substance: OCTREOTIDE ACETATE
     Indication: NEUROENDOCRINE CARCINOMA METASTATIC
     Dosage: 60 MG, Q4W (EVERY 4 WEEKS)
     Route: 030
     Dates: start: 20150807

REACTIONS (14)
  - Muscle tightness [Unknown]
  - Stress [Unknown]
  - Ear pain [Unknown]
  - Headache [Recovered/Resolved]
  - Blood pressure increased [Unknown]
  - Nasopharyngitis [Recovered/Resolved]
  - Abdominal pain upper [Unknown]
  - Heart rate decreased [Unknown]
  - Oropharyngeal pain [Recovered/Resolved]
  - Lethargy [Unknown]
  - Malaise [Unknown]
  - Arthralgia [Unknown]
  - Nasal congestion [Recovered/Resolved]
  - Needle issue [Unknown]

NARRATIVE: CASE EVENT DATE: 20170127
